FAERS Safety Report 4853891-4 (Version None)
Quarter: 2005Q4

REPORT INFORMATION
  Report Type: 
  Country: None (occurrence: None)
  Receive Date: 20051213
  Receipt Date: 20051129
  Transmission Date: 20060501
  Serious: No
  Sender: FDA-Public Use
  Company Number: 05-000921

PATIENT
  Age: 56 Year
  Sex: Female
  Weight: 54.4 kg

DRUGS (3)
  1. ESTRACE [Suspect]
     Indication: MENOPAUSAL SYMPTOMS
     Dosage: 0.01%, 1/8 APPLICATOR, 3 X WEEKLY, VAGINAL
     Route: 067
     Dates: start: 20000101
  2. ATIVAN [Concomitant]
  3. LEXAPRO [Concomitant]

REACTIONS (5)
  - CHOLELITHIASIS [None]
  - HYPERSENSITIVITY [None]
  - JOINT SWELLING [None]
  - POST PROCEDURAL COMPLICATION [None]
  - VAGINAL SWELLING [None]
